FAERS Safety Report 6235364-X (Version None)
Quarter: 2009Q2

REPORT INFORMATION
  Report Type: 
  Country: None (occurrence: None)
  Receive Date: 20090615
  Receipt Date: 20090602
  Transmission Date: 20091009
  Serious: No
  Sender: FDA-Public Use
  Company Number: 006663

PATIENT
  Age: 62 Year
  Sex: Male

DRUGS (10)
  1. PLETAL [Suspect]
     Indication: GAIT DISTURBANCE
     Dosage: 150 MG, DAILY DOSE ORAL
     Route: 048
     Dates: start: 20090101
  2. CLOPIDOGREL [Concomitant]
  3. DIAMICRON MR (GLICLAZIDE) [Concomitant]
  4. CARVEDILOL [Concomitant]
  5. AMLOPIN (AMLODIPINE BESILATE) [Concomitant]
  6. CARDURA XL [Concomitant]
  7. LIPITOR [Concomitant]
  8. NU-SEALS (ACETYLSALICYLIC ACID) [Concomitant]
  9. TRIAZOLAM [Concomitant]
  10. ESOMEPRAZOLE MAGNESIUM [Concomitant]

REACTIONS (2)
  - DYSPHONIA [None]
  - DYSPNOEA [None]
